FAERS Safety Report 16390076 (Version 2)
Quarter: 2019Q3

REPORT INFORMATION
  Report Type: Report from Study
  Country: BR (occurrence: BR)
  Receive Date: 20190604
  Receipt Date: 20190924
  Transmission Date: 20191004
  Serious: Yes (Other)
  Sender: FDA-Public Use
  Company Number: PHHY2019BR114942

PATIENT
  Sex: Female
  Weight: 65 kg

DRUGS (3)
  1. KISQALI [Suspect]
     Active Substance: RIBOCICLIB
     Indication: BREAST CANCER METASTATIC
     Dosage: 3 TABLETS OF 200 MG (TOTAL 600 MG) DAILY, TAKE FOR 21 DAYS STOP FOR 7 DAYS
     Route: 048
     Dates: start: 20190412, end: 20190502
  2. XELODA [Concomitant]
     Active Substance: CAPECITABINE
     Indication: PRODUCT USED FOR UNKNOWN INDICATION
     Route: 065
  3. KISQALI [Suspect]
     Active Substance: RIBOCICLIB
     Dosage: 2 TABLETS OF 200 MG (TOTAL 400 MG) DAILY, TAKE FOR 21 DAYS STOP FOR 7 DAYS
     Route: 048
     Dates: start: 20190517

REACTIONS (11)
  - Nausea [Recovering/Resolving]
  - Platelet count decreased [Unknown]
  - Vomiting [Unknown]
  - Oropharyngeal pain [Recovering/Resolving]
  - Neutropenia [Unknown]
  - Diarrhoea [Unknown]
  - Gingival bleeding [Recovering/Resolving]
  - Fatigue [Recovering/Resolving]
  - Breast cancer metastatic [Unknown]
  - Malignant neoplasm progression [Unknown]
  - Ear pain [Recovering/Resolving]

NARRATIVE: CASE EVENT DATE: 2019
